FAERS Safety Report 6991892-0 (Version None)
Quarter: 2010Q3

REPORT INFORMATION
  Report Type: 
  Country: None (occurrence: None)
  Receive Date: 20100917
  Receipt Date: 20100909
  Transmission Date: 20110219
  Serious: Yes (Other)
  Sender: FDA-Public Use
  Company Number: GB-PFIZER INC-2010104423

PATIENT
  Age: 62 Year
  Sex: Female

DRUGS (1)
  1. CHAMPIX [Suspect]
     Indication: SMOKING CESSATION THERAPY
     Dosage: 0.5 MG, UNK
     Route: 030
     Dates: start: 20100527, end: 20100720

REACTIONS (4)
  - AFFECT LABILITY [None]
  - AGITATION [None]
  - ANGER [None]
  - SELF-INJURIOUS IDEATION [None]
